FAERS Safety Report 17398255 (Version 3)
Quarter: 2020Q1

REPORT INFORMATION
  Report Type: Report from Study
  Country: RU (occurrence: RU)
  Receive Date: 20200210
  Receipt Date: 20200317
  Transmission Date: 20200409
  Serious: Yes (Hospitalization)
  Sender: FDA-Public Use
  Company Number: RU-EISAI MEDICAL RESEARCH-EC-2020-069753

PATIENT
  Age: 60 Year
  Sex: Male
  Weight: 62.5 kg

DRUGS (7)
  1. EVEROLIMUS. [Suspect]
     Active Substance: EVEROLIMUS
     Route: 048
     Dates: start: 20200217
  2. LENVATINIB [Suspect]
     Active Substance: LENVATINIB
     Dosage: 3 CAPS
     Route: 048
     Dates: start: 20190909, end: 20200205
  3. L THYROXINE [Concomitant]
     Active Substance: LEVOTHYROXINE SODIUM
  4. LENVATINIB [Suspect]
     Active Substance: LENVATINIB
     Indication: RENAL CELL CARCINOMA
     Dosage: 3 CAPS
     Route: 048
     Dates: start: 20190627, end: 20190821
  5. EVEROLIMUS. [Suspect]
     Active Substance: EVEROLIMUS
     Route: 048
     Dates: start: 20190909, end: 20200205
  6. EVEROLIMUS. [Suspect]
     Active Substance: EVEROLIMUS
     Indication: RENAL CELL CARCINOMA
     Route: 048
     Dates: start: 20190627, end: 20190821
  7. LENVATINIB [Suspect]
     Active Substance: LENVATINIB
     Dosage: 3 CAPS
     Route: 048
     Dates: start: 20200217

REACTIONS (1)
  - Hypokalaemia [Recovered/Resolved]

NARRATIVE: CASE EVENT DATE: 20200206
